FAERS Safety Report 9305756 (Version 1)
Quarter: 2013Q2

REPORT INFORMATION
  Report Type: Spontaneous
  Country: US (occurrence: US)
  Receive Date: 20130523
  Receipt Date: 20130523
  Transmission Date: 20140414
  Serious: Yes (Hospitalization)
  Sender: FDA-Public Use
  Company Number: US-AMGEN-USASP2013036012

PATIENT
  Age: 58 Year
  Sex: Female

DRUGS (2)
  1. NEULASTA [Suspect]
     Indication: PRODUCT USED FOR UNKNOWN INDICATION
     Dosage: UNK
     Route: 065
     Dates: start: 20130513
  2. CHEMOTHERAPEUTICS [Concomitant]
     Indication: BREAST CANCER
     Dosage: UNK
     Dates: start: 201302

REACTIONS (3)
  - Drug eruption [Recovering/Resolving]
  - Local swelling [Unknown]
  - Urticaria [Unknown]
